FAERS Safety Report 4934938-3 (Version None)
Quarter: 2006Q1

REPORT INFORMATION
  Report Type: 
  Country: None (occurrence: None)
  Receive Date: 20060303
  Receipt Date: 20060303
  Transmission Date: 20060701
  Serious: Yes (Hospitalization)
  Sender: FDA-Public Use
  Company Number: None

PATIENT
  Age: 73 Year
  Sex: Male
  Weight: 63.9572 kg

DRUGS (13)
  1. BEVACIZUMAB [Suspect]
     Indication: COLON CANCER
     Dosage: 5 MG/KG DAY 1 IV
     Route: 042
     Dates: start: 20051019, end: 20060104
  2. OXALIPLATIN [Suspect]
     Indication: COLON CANCER
     Dosage: 85 MG/M2 DAY 1 IV
     Route: 042
     Dates: start: 20051019, end: 20060104
  3. LEUCOVORIN CALCIUM [Suspect]
     Indication: COLON CANCER
     Dosage: 400 MG/M2 DAY 1 IV
     Route: 042
     Dates: start: 20051019, end: 20060104
  4. FLUOROURACIL [Suspect]
     Indication: COLON CANCER
     Dosage: 400 MG/M2 DAY 1 IV
     Route: 042
     Dates: start: 20051019, end: 20060104
  5. FLUOROURACIL [Suspect]
     Indication: COLON CANCER
     Dosage: 2.4 G/M2 DAY 1 IV
     Route: 042
     Dates: start: 20051019, end: 20060104
  6. ERLOTINIB [Suspect]
     Indication: COLON CANCER
     Dosage: 150 MG EVERYDAY PO
     Route: 048
     Dates: start: 20051019, end: 20060104
  7. ACTOS [Concomitant]
  8. COMPAZINE [Concomitant]
  9. GLIPIZIDE [Concomitant]
  10. LOMOTIL [Concomitant]
  11. LOPRESSOR [Concomitant]
  12. RITALIN [Concomitant]
  13. TYLENOL (CAPLET) [Concomitant]

REACTIONS (9)
  - ASTHENIA [None]
  - BACTERAEMIA [None]
  - DEHYDRATION [None]
  - DYSPNOEA [None]
  - HYPOKALAEMIA [None]
  - INTERNATIONAL NORMALISED RATIO INCREASED [None]
  - PULMONARY EMBOLISM [None]
  - RENAL FAILURE ACUTE [None]
  - STAPHYLOCOCCAL INFECTION [None]
